FAERS Safety Report 8982981 (Version 4)
Quarter: 2013Q3

REPORT INFORMATION
  Report Type: Report from Study
  Country: DE (occurrence: DE)
  Receive Date: 20121224
  Receipt Date: 20130827
  Transmission Date: 20140515
  Serious: Yes (Death, Hospitalization)
  Sender: FDA-Public Use
  Company Number: DE-BRISTOL-MYERS SQUIBB COMPANY-17209040

PATIENT
  Age: 60 Year
  Sex: Male

DRUGS (3)
  1. PACLITAXEL [Suspect]
     Indication: GASTRIC CANCER
     Dosage: THERAPY DAYS:1,8,15 EVERY 4 WEEKS
     Dates: start: 20120813
  2. CIPROFLOXACIN [Concomitant]
     Dates: start: 20120815
  3. METRONIDAZOLE [Concomitant]

REACTIONS (2)
  - Neutropenic sepsis [Fatal]
  - Renal failure acute [Fatal]
